FAERS Safety Report 19990006 (Version 1)
Quarter: 2021Q4

REPORT INFORMATION
  Report Type: Spontaneous
  Country: US (occurrence: US)
  Receive Date: 20211025
  Receipt Date: 20211025
  Transmission Date: 20220303
  Serious: Yes (Hospitalization, Other)
  Sender: FDA-Public Use
  Company Number: US-CIPLA LTD.-2021US06970

PATIENT

DRUGS (5)
  1. HYDRALAZINE [Suspect]
     Active Substance: HYDRALAZINE HYDROCHLORIDE
     Dosage: UNK
     Route: 064
  2. INSULIN NOS [Suspect]
     Active Substance: INSULIN NOS
     Dosage: UNK
     Route: 064
  3. METFORMIN [Suspect]
     Active Substance: METFORMIN HYDROCHLORIDE
     Dosage: UNK
     Route: 064
  4. MISOPROSTOL [Suspect]
     Active Substance: MISOPROSTOL
     Dosage: UNK
     Route: 064
  5. OXYTOCIN [Suspect]
     Active Substance: OXYTOCIN
     Dosage: UNK
     Route: 064

REACTIONS (4)
  - Neonatal asphyxia [Recovering/Resolving]
  - Hypoglycaemia neonatal [Recovering/Resolving]
  - Foetal heart rate deceleration abnormality [Recovering/Resolving]
  - Foetal exposure during pregnancy [Unknown]
